FAERS Safety Report 22816975 (Version 5)
Quarter: 2023Q4

REPORT INFORMATION
  Report Type: Spontaneous
  Country: US (occurrence: US)
  Receive Date: 20230812
  Receipt Date: 20231108
  Transmission Date: 20240110
  Serious: Yes (Hospitalization, Other)
  Sender: FDA-Public Use
  Company Number: US-AMGEN-USASP2023140167

PATIENT
  Age: 59 Year
  Sex: Female

DRUGS (2)
  1. TAVNEOS [Suspect]
     Active Substance: AVACOPAN
     Indication: Granulomatosis with polyangiitis
     Dosage: 30 MILLIGRAM, BID, TAKE 3 CAPSULES (30 MG) BY MOUTH TWICE DAILY WITH FOOD
     Route: 048
     Dates: start: 20230503
  2. TAVNEOS [Suspect]
     Active Substance: AVACOPAN
     Dosage: 30 MILLIGRAM, QD (TAKE 3 CAPSULES (30 MG) BY MOUTH DAILY WITH FOOD)
     Route: 048

REACTIONS (3)
  - Hospitalisation [Unknown]
  - Dyspnoea [Unknown]
  - Off label use [Unknown]

NARRATIVE: CASE EVENT DATE: 20230101
